FAERS Safety Report 13668684 (Version 1)
Quarter: 2017Q2

REPORT INFORMATION
  Report Type: Spontaneous
  Country: US (occurrence: US)
  Receive Date: 20170620
  Receipt Date: 20170620
  Transmission Date: 20170830
  Serious: Yes (Hospitalization)
  Sender: FDA-Public Use
  Company Number: None

PATIENT
  Sex: Female
  Weight: 124.5 kg

DRUGS (2)
  1. DOXORUBICIN HYDROCHLORIDE. [Suspect]
     Active Substance: DOXORUBICIN HYDROCHLORIDE
     Dates: end: 20170525
  2. CYCLOPHOSPHAMIDE. [Suspect]
     Active Substance: CYCLOPHOSPHAMIDE
     Dates: end: 20170525

REACTIONS (11)
  - Hyponatraemia [None]
  - Renal tubular necrosis [None]
  - Pneumonia [None]
  - Type 2 diabetes mellitus [None]
  - Diarrhoea [None]
  - Anaemia [None]
  - Upper respiratory tract infection [None]
  - Acute kidney injury [None]
  - Bronchitis [None]
  - Metabolic acidosis [None]
  - Thrombocytopenia [None]

NARRATIVE: CASE EVENT DATE: 20170605
